FAERS Safety Report 6494146-4 (Version None)
Quarter: 2009Q4

REPORT INFORMATION
  Report Type: 
  Country: None (occurrence: None)
  Receive Date: 20091214
  Receipt Date: 20090112
  Transmission Date: 20100525
  Serious: No
  Sender: FDA-Public Use
  Company Number: US-BRISTOL-MYERS SQUIBB COMPANY-14466247

PATIENT
  Age: 47 Year
  Sex: Female
  Weight: 110 kg

DRUGS (6)
  1. ABILIFY [Suspect]
     Indication: MAJOR DEPRESSION
     Dates: start: 20080101
  2. CYMBALTA [Concomitant]
  3. REGLAN [Concomitant]
  4. AMITIZA [Concomitant]
  5. PREVACID [Concomitant]
  6. MS CONTIN [Concomitant]

REACTIONS (1)
  - VISION BLURRED [None]
